FAERS Safety Report 14090972 (Version 1)
Quarter: 2017Q4

REPORT INFORMATION
  Report Type: Spontaneous
  Country: US (occurrence: US)
  Receive Date: 20171016
  Receipt Date: 20171016
  Transmission Date: 20180321
  Serious: No
  Sender: FDA-Public Use
  Company Number: US-PAR PHARMACEUTICAL, INC-2016SCPR015849

PATIENT
  Age: 77 Year
  Sex: Male

DRUGS (2)
  1. CHOLESTYRAMINE. [Suspect]
     Active Substance: CHOLESTYRAMINE
     Dosage: THREE AND A HALF TEASPOONS IN EIGHT OZ OF WATER, HS
     Route: 048
  2. CHOLESTYRAMINE. [Suspect]
     Active Substance: CHOLESTYRAMINE
     Indication: DIARRHOEA
     Dosage: THREE AND A HALF TEASPOONS IN EIGHT OZ OF WATER, HS
     Route: 048
     Dates: start: 20160902

REACTIONS (4)
  - Off label use [Unknown]
  - Product quality issue [Unknown]
  - Product taste abnormal [Unknown]
  - No adverse event [Unknown]

NARRATIVE: CASE EVENT DATE: 201609
